FAERS Safety Report 4288749-5 (Version None)
Quarter: 2004Q1

REPORT INFORMATION
  Report Type: 
  Country: None (occurrence: None)
  Receive Date: 20040205
  Receipt Date: 20040121
  Transmission Date: 20041129
  Serious: Yes (Death, Hospitalization)
  Sender: FDA-Public Use
  Company Number: 2004AP00288

PATIENT
  Age: 69 Year
  Sex: Male

DRUGS (12)
  1. IRESSA [Suspect]
     Indication: LUNG ADENOCARCINOMA
     Dosage: 250 MG DAILY PO
     Route: 048
     Dates: start: 20031218, end: 20031223
  2. IRESSA [Suspect]
     Indication: NON-SMALL CELL LUNG CANCER
     Dosage: 250 MG DAILY PO
     Route: 048
     Dates: start: 20031218, end: 20031223
  3. CODEINE [Concomitant]
  4. LACBON [Concomitant]
  5. SELBEX [Concomitant]
  6. CARBOPLATIN [Concomitant]
  7. PACLITAXEL [Concomitant]
  8. DOCETAXEL [Concomitant]
  9. GEMCITABINE [Concomitant]
  10. CISPLATIN [Concomitant]
  11. CPT-11 [Concomitant]
  12. VINORELBINE TARTRATE [Concomitant]

REACTIONS (5)
  - CHEST X-RAY ABNORMAL [None]
  - GASTRIC ULCER HAEMORRHAGE [None]
  - LUNG DISORDER [None]
  - METASTASES TO LUNG [None]
  - PO2 DECREASED [None]
